FAERS Safety Report 20749414 (Version 2)
Quarter: 2022Q3

REPORT INFORMATION
  Report Type: Report from Study
  Country: JP (occurrence: JP)
  Receive Date: 20220426
  Receipt Date: 20220706
  Transmission Date: 20221027
  Serious: Yes (Life-Threatening, Disabling, Other)
  Sender: FDA-Public Use
  Company Number: JP-MSD-M2022-16686

PATIENT
  Age: 83 Year
  Sex: Male
  Weight: 53 kg

DRUGS (4)
  1. BEZLOTOXUMAB [Suspect]
     Active Substance: BEZLOTOXUMAB
     Indication: Infection prophylaxis
     Dosage: 500 MILLIGRAM, ONCE
     Route: 041
     Dates: start: 20220222, end: 20220222
  2. DAFCLIR [Concomitant]
     Indication: Clostridium difficile infection
     Dosage: 200 MILLIGRAM, BID
     Route: 048
     Dates: start: 20220215, end: 20220222
  3. BIFIDOBACTERIUM SPP. [Concomitant]
     Active Substance: BIFIDOBACTERIUM SPP.
     Indication: Prophylaxis
     Dosage: 1 GRAM, TID
     Dates: start: 20220224
  4. MIYA-BM [Concomitant]
     Active Substance: CLOSTRIDIUM BUTYRICUM SPORES STRAIN M-55
     Dosage: 1 DOSAGE FORM, TID
     Dates: start: 20220224

REACTIONS (6)
  - Atrial fibrillation [Unknown]
  - Cerebral infarction [Recovered/Resolved with Sequelae]
  - Haemoglobin decreased [Unknown]
  - Blood urea decreased [Recovered/Resolved]
  - White blood cell count increased [Unknown]
  - Underdose [Unknown]

NARRATIVE: CASE EVENT DATE: 20220101
